FAERS Safety Report 4447407-4 (Version None)
Quarter: 2004Q3

REPORT INFORMATION
  Report Type: 
  Country: None (occurrence: None)
  Receive Date: 20040823
  Receipt Date: 20040722
  Transmission Date: 20050211
  Serious: No
  Sender: FDA-Public Use
  Company Number: PHEH2004US07944

PATIENT
  Age: 34 Year
  Sex: Female

DRUGS (1)
  1. ZELNORM [Suspect]
     Indication: IRRITABLE BOWEL SYNDROME
     Dosage: 6 MG ONCE/SINGLE ORAL
     Route: 048
     Dates: start: 20040721, end: 20040721

REACTIONS (3)
  - DIARRHOEA [None]
  - DYSPEPSIA [None]
  - HEART RATE INCREASED [None]
